FAERS Safety Report 18921755 (Version 2)
Quarter: 2021Q1

REPORT INFORMATION
  Report Type: Spontaneous
  Country: JP (occurrence: JP)
  Receive Date: 20210222
  Receipt Date: 20210308
  Transmission Date: 20210420
  Serious: Yes (Hospitalization)
  Sender: FDA-Public Use
  Company Number: JP-GLAXOSMITHKLINE-JP2021044949

PATIENT

DRUGS (2)
  1. LEBENIN?S [Concomitant]
     Dosage: 3 DF, BID, BEFORE BREAKFAST AND DINNER
  2. AVOLVE [Suspect]
     Active Substance: DUTASTERIDE
     Dosage: UNK
     Route: 048

REACTIONS (1)
  - Hospitalisation [Unknown]
